FAERS Safety Report 10554121 (Version 2)
Quarter: 2014Q4

REPORT INFORMATION
  Report Type: Spontaneous
  Country: US (occurrence: US)
  Receive Date: 20141030
  Receipt Date: 20141030
  Transmission Date: 20150529
  Serious: Yes (Hospitalization, Other)
  Sender: FDA-Public Use
  Company Number: US-GLAXOSMITHKLINE-A0808584A

PATIENT
  Age: 58 Year
  Sex: Male

DRUGS (7)
  1. CYMBALTA [Concomitant]
     Active Substance: DULOXETINE HYDROCHLORIDE
  2. ZOCOR [Concomitant]
     Active Substance: SIMVASTATIN
  3. AVANDIA [Suspect]
     Active Substance: ROSIGLITAZONE MALEATE
     Indication: TYPE 2 DIABETES MELLITUS
     Dosage: 8 MG, UNK
     Route: 048
     Dates: start: 20030227, end: 20070809
  4. AVANDARYL [Suspect]
     Active Substance: GLIMEPIRIDE\ROSIGLITAZONE MALEATE
     Indication: TYPE 2 DIABETES MELLITUS
     Route: 048
     Dates: start: 200708, end: 200809
  5. CYMBALTA [Concomitant]
     Active Substance: DULOXETINE HYDROCHLORIDE
  6. NEURONTIN [Concomitant]
     Active Substance: GABAPENTIN
  7. LOTENSIN [Concomitant]
     Active Substance: BENAZEPRIL HYDROCHLORIDE

REACTIONS (10)
  - Blindness unilateral [Unknown]
  - Cerebrovascular accident [Unknown]
  - Cardiac disorder [Unknown]
  - Brain injury [Unknown]
  - Carotid artery stenosis [Unknown]
  - Cardiac failure congestive [Not Recovered/Not Resolved]
  - Transient ischaemic attack [Unknown]
  - Coronary artery disease [Unknown]
  - Cerebral infarction [Unknown]
  - Myocardial infarction [Unknown]

NARRATIVE: CASE EVENT DATE: 200708
